FAERS Safety Report 5857818-8 (Version None)
Quarter: 2008Q3

REPORT INFORMATION
  Report Type: 
  Country: None (occurrence: None)
  Receive Date: 20080826
  Receipt Date: 20080820
  Transmission Date: 20090109
  Serious: Yes (Death, Hospitalization)
  Sender: FDA-Public Use
  Company Number: US-JNJFOC-20080805426

PATIENT
  Sex: Female
  Weight: 45.36 kg

DRUGS (1)
  1. DURAGESIC-100 [Suspect]
     Indication: CROHN'S DISEASE
     Dosage: 6X 100UG/HR PATCHES
     Route: 062

REACTIONS (1)
  - CARDIAC FAILURE [None]
